FAERS Safety Report 6586784-5 (Version None)
Quarter: 2010Q1

REPORT INFORMATION
  Report Type: 
  Country: None (occurrence: None)
  Receive Date: 20100217
  Receipt Date: 20090715
  Transmission Date: 20100710
  Serious: No
  Sender: FDA-Public Use
  Company Number: US-ALLERGAN-0909931US

PATIENT
  Age: 54 Year
  Sex: Female

DRUGS (2)
  1. BOTOX COSMETIC [Suspect]
     Indication: SKIN WRINKLING
     Dosage: 52 UNITS, SINGLE
     Route: 030
     Dates: start: 20090625, end: 20090625
  2. BOTOX COSMETIC [Suspect]
     Dosage: UNK, SINGLE
     Route: 030
     Dates: start: 20080827, end: 20080827

REACTIONS (4)
  - HEADACHE [None]
  - HYPOAESTHESIA FACIAL [None]
  - SINUSITIS [None]
  - SKIN TIGHTNESS [None]
